FAERS Safety Report 7479411-6 (Version None)
Quarter: 2011Q2

REPORT INFORMATION
  Report Type: 
  Country: None (occurrence: None)
  Receive Date: 20110513
  Receipt Date: 20110506
  Transmission Date: 20111010
  Serious: Yes (Hospitalization, Other)
  Sender: FDA-Public Use
  Company Number: GB-PFIZER INC-2011072493

PATIENT
  Age: 63 Year
  Sex: Female

DRUGS (2)
  1. SUTENT [Suspect]
     Indication: RENAL CELL CARCINOMA
     Dosage: 50 MG, 1X/DAY
     Dates: start: 20110227, end: 20110302
  2. ATENOLOL [Suspect]
     Indication: ARRHYTHMIA
     Dosage: 50 MG ONCE DAILY
     Route: 048

REACTIONS (2)
  - BRADYCARDIA [None]
  - SUPRAVENTRICULAR TACHYCARDIA [None]
